FAERS Safety Report 8606743-8 (Version None)
Quarter: 2012Q3

REPORT INFORMATION
  Report Type: 
  Country: None (occurrence: None)
  Receive Date: 20120820
  Receipt Date: 20120816
  Transmission Date: 20120928
  Serious: Yes (Other)
  Sender: FDA-Public Use
  Company Number: US-INCYTE CORPORATION-2012IN001543

PATIENT
  Sex: Female

DRUGS (2)
  1. EXJADE [Suspect]
     Dosage: UNK
  2. JAKAFI [Suspect]
     Indication: LYMPHATIC DISORDER
     Dosage: 15 MG, BID
     Route: 048
     Dates: start: 20120316

REACTIONS (2)
  - HAEMATOCHEZIA [None]
  - DIARRHOEA [None]
